FAERS Safety Report 11466835 (Version 1)
Quarter: 2015Q3

REPORT INFORMATION
  Report Type: Report from Study
  Country: DE (occurrence: DE)
  Receive Date: 20150908
  Receipt Date: 20150908
  Transmission Date: 20151125
  Serious: Yes (Other)
  Sender: FDA-Public Use
  Company Number: DE-009507513-1508DEU011419

PATIENT
  Age: 85 Year
  Sex: Female

DRUGS (2)
  1. PHENPROCOUMON [Suspect]
     Active Substance: PHENPROCOUMON
     Route: 048
  2. SIMVASTATIN. [Suspect]
     Active Substance: SIMVASTATIN
     Route: 048

REACTIONS (1)
  - Drug-induced liver injury [Unknown]
